FAERS Safety Report 7727265-2 (Version None)
Quarter: 2011Q3

REPORT INFORMATION
  Report Type: 
  Country: None (occurrence: None)
  Receive Date: 20110902
  Receipt Date: 20110826
  Transmission Date: 20111222
  Serious: Yes (Life-Threatening, Other)
  Sender: FDA-Public Use
  Company Number: US-ELI_LILLY_AND_COMPANY-US201109000232

PATIENT
  Age: 34 Year
  Sex: Male

DRUGS (1)
  1. EFFIENT [Suspect]
     Dosage: 60 MG, UNK

REACTIONS (1)
  - PULMONARY CONGESTION [None]
